FAERS Safety Report 7544233-4 (Version None)
Quarter: 2011Q2

REPORT INFORMATION
  Report Type: 
  Country: None (occurrence: None)
  Receive Date: 20110613
  Receipt Date: 20070808
  Transmission Date: 20111010
  Serious: Yes (Other)
  Sender: FDA-Public Use
  Company Number: PHMT2007CA01506

PATIENT
  Sex: Female

DRUGS (2)
  1. SANDOSTATIN LAR [Suspect]
     Indication: CARCINOID TUMOUR
     Dosage: 20 MG, QMO
     Route: 030
     Dates: start: 20070503
  2. SANDOSTATIN LAR [Suspect]
     Dosage: 30 MG, UNK

REACTIONS (6)
  - ADRENAL DISORDER [None]
  - NEPHROLITHIASIS [None]
  - BRAIN NEOPLASM [None]
  - HYPOAESTHESIA FACIAL [None]
  - ABDOMINAL NEOPLASM [None]
  - HEADACHE [None]
